FAERS Safety Report 8407564 (Version 2)
Quarter: 2013Q4

REPORT INFORMATION
  Report Type: Spontaneous
  Country: US (occurrence: US)
  Receive Date: 20120215
  Receipt Date: 20131122
  Transmission Date: 20140711
  Serious: Yes (Other)
  Sender: FDA-Public Use
  Company Number: US-ROCHE-793550

PATIENT
  Sex: Male
  Weight: 62.65 kg

DRUGS (2)
  1. ACCUTANE [Suspect]
     Indication: ACNE
     Dosage: IN MID 1980S
     Route: 065
  2. ACCUTANE [Suspect]
     Route: 065

REACTIONS (6)
  - Colitis ulcerative [Unknown]
  - Inflammatory bowel disease [Unknown]
  - Irritable bowel syndrome [Unknown]
  - Headache [Unknown]
  - Depression [Unknown]
  - Suicidal ideation [Unknown]
